FAERS Safety Report 6691604-4 (Version None)
Quarter: 2010Q2

REPORT INFORMATION
  Report Type: 
  Country: None (occurrence: None)
  Receive Date: 20100422
  Receipt Date: 20100413
  Transmission Date: 20101027
  Serious: Yes (Hospitalization)
  Sender: FDA-Public Use
  Company Number: US-JNJFOC-20100403828

PATIENT
  Sex: Female
  Weight: 92.53 kg

DRUGS (13)
  1. FENTANYL-100 [Suspect]
     Indication: PAIN
     Route: 062
  2. FENTANYL-100 [Suspect]
     Route: 062
  3. FENTANYL CITRATE [Suspect]
     Indication: PAIN
     Route: 062
  4. BONIVA [Suspect]
     Indication: OSTEOPOROSIS
     Route: 065
  5. ZOCOR [Concomitant]
     Indication: BLOOD CHOLESTEROL INCREASED
     Route: 048
  6. XANAX [Concomitant]
     Indication: ANXIETY
     Route: 048
  7. NEURONTIN [Concomitant]
     Indication: NEUROPATHY PERIPHERAL
     Dosage: 300MG 2 CAPSULES
     Route: 048
  8. SOMA [Concomitant]
     Indication: MUSCLE RELAXANT THERAPY
     Route: 048
  9. LANTUS [Concomitant]
     Indication: DIABETES MELLITUS
     Route: 058
  10. NOVOLOG [Concomitant]
     Indication: DIABETES MELLITUS
     Dosage: AS NEEDED PER SLIDING SCALE
     Route: 058
  11. NEXIUM [Concomitant]
     Indication: GASTRIC DISORDER
     Route: 048
  12. FOSINOPRIL SODIUM [Concomitant]
     Indication: BLOOD PRESSURE ABNORMAL
     Route: 048
  13. EFFEXOR XR [Concomitant]
     Indication: DRUG USE FOR UNKNOWN INDICATION
     Route: 048

REACTIONS (3)
  - DRUG ADMINISTERED AT INAPPROPRIATE SITE [None]
  - OESOPHAGEAL ULCER [None]
  - WRONG TECHNIQUE IN DRUG USAGE PROCESS [None]
